FAERS Safety Report 7556678-7 (Version None)
Quarter: 2011Q2

REPORT INFORMATION
  Report Type: 
  Country: None (occurrence: None)
  Receive Date: 20110616
  Receipt Date: 20110616
  Transmission Date: 20111010
  Serious: Yes (Hospitalization)
  Sender: FDA-Public Use
  Company Number: None

PATIENT
  Age: 21 Year
  Sex: Female
  Weight: 57 kg

DRUGS (1)
  1. MILNACIPRAN [Suspect]
     Indication: PAIN
     Dates: start: 20110613, end: 20110613

REACTIONS (7)
  - ACCIDENTAL OVERDOSE [None]
  - SEDATION [None]
  - NAUSEA [None]
  - ENDODONTIC PROCEDURE [None]
  - CONFUSIONAL STATE [None]
  - VOMITING [None]
  - DIZZINESS [None]
